FAERS Safety Report 6161027-5 (Version None)
Quarter: 2009Q2

REPORT INFORMATION
  Report Type: 
  Country: None (occurrence: None)
  Receive Date: 20090420
  Receipt Date: 20090406
  Transmission Date: 20091009
  Serious: Yes (Other)
  Sender: FDA-Public Use
  Company Number: US-PFIZER INC-2009181866

PATIENT

DRUGS (1)
  1. NICOTINE [Suspect]
     Dosage: 3 BOTTLES A WEEK, NOW 1/WEEK
     Route: 045

REACTIONS (3)
  - DRUG DEPENDENCE [None]
  - INCORRECT DRUG ADMINISTRATION DURATION [None]
  - OVERDOSE [None]
